FAERS Safety Report 9642546 (Version 1)
Quarter: 2013Q4

REPORT INFORMATION
  Report Type: Spontaneous
  Country: US (occurrence: US)
  Receive Date: 20131024
  Receipt Date: 20131024
  Transmission Date: 20140711
  Serious: Yes (Hospitalization)
  Sender: FDA-Public Use
  Company Number: US-BAYER-2013-128003

PATIENT
  Age: 20 Year
  Sex: Female
  Weight: 75.74 kg

DRUGS (3)
  1. YAZ [Suspect]
  2. YASMIN [Suspect]
  3. ADVAIR [Concomitant]
     Dosage: 1 PUFF B.I.D. (INTERPRETED AS TWICE DAILY)
     Route: 045

REACTIONS (1)
  - Pulmonary embolism [Recovered/Resolved]
